FAERS Safety Report 5043227-0 (Version None)
Quarter: 2006Q3

REPORT INFORMATION
  Report Type: 
  Country: None (occurrence: None)
  Receive Date: 20060703
  Receipt Date: 20060703
  Transmission Date: 20061208
  Serious: Yes (Other)
  Sender: FDA-Public Use
  Company Number: None

PATIENT
  Sex: Male
  Weight: 66.6788 kg

DRUGS (2)
  1. CYMBALTA [Suspect]
     Indication: DEPRESSION
     Dosage: 1 TAB   BID   PO
     Route: 048
     Dates: start: 20060524, end: 20060609
  2. CYMBALTA [Suspect]
     Indication: PAIN
     Dosage: 1 TAB   BID   PO
     Route: 048
     Dates: start: 20060524, end: 20060609

REACTIONS (3)
  - RASH ERYTHEMATOUS [None]
  - RASH PRURITIC [None]
  - URTICARIA [None]
